FAERS Safety Report 25793606 (Version 2)
Quarter: 2025Q3

REPORT INFORMATION
  Report Type: Spontaneous
  Country: US (occurrence: US)
  Receive Date: 20250912
  Receipt Date: 20250920
  Transmission Date: 20251021
  Serious: Yes (Other)
  Sender: ABBVIE
  Company Number: US-ABBVIE-6449253

PATIENT
  Age: 28 Year
  Sex: Female
  Weight: 61 kg

DRUGS (3)
  1. VRAYLAR [Suspect]
     Active Substance: CARIPRAZINE
     Indication: Bipolar I disorder
     Dosage: FORM STRENGTH: 1.5 MILLIGRAM
     Route: 048
     Dates: start: 2019, end: 202503
  2. VRAYLAR [Suspect]
     Active Substance: CARIPRAZINE
     Indication: Bipolar I disorder
     Dosage: FORM STRENGTH: 1.5 MILLIGRAM
     Route: 048
     Dates: start: 20250825
  3. LEXAPRO [Concomitant]
     Active Substance: ESCITALOPRAM OXALATE
     Indication: Bipolar disorder

REACTIONS (11)
  - Urinary incontinence [Recovered/Resolved]
  - Maternal exposure during pregnancy [Unknown]
  - Therapeutic response unexpected [Unknown]
  - Nausea [Recovered/Resolved]
  - Areflexia [Recovered/Resolved]
  - Lactation insufficiency [Recovered/Resolved]
  - Premature labour [Not Recovered/Not Resolved]
  - Hypertension [Recovered/Resolved]
  - Pre-eclampsia [Recovered/Resolved]
  - Autonomic nervous system imbalance [Recovered/Resolved]
  - Live birth [Unknown]

NARRATIVE: CASE EVENT DATE: 20240101
